FAERS Safety Report 8312256-3 (Version None)
Quarter: 2012Q2

REPORT INFORMATION
  Report Type: 
  Country: None (occurrence: None)
  Receive Date: 20120425
  Receipt Date: 20120416
  Transmission Date: 20120825
  Serious: Yes (Hospitalization)
  Sender: FDA-Public Use
  Company Number: JP-FRI-1000030013

PATIENT
  Sex: Female

DRUGS (1)
  1. LEXAPRO [Suspect]
     Dosage: 10 MG
     Dates: start: 20120413, end: 20120413

REACTIONS (3)
  - NAUSEA [None]
  - POLLAKIURIA [None]
  - ABDOMINAL DISTENSION [None]
